FAERS Safety Report 21936716 (Version 3)
Quarter: 2023Q2

REPORT INFORMATION
  Report Type: Spontaneous
  Country: US (occurrence: US)
  Receive Date: 20230201
  Receipt Date: 20230504
  Transmission Date: 20230721
  Serious: No
  Sender: FDA-Public Use
  Company Number: US-AMGEN-USASP2023011840

PATIENT
  Age: 52 Year
  Sex: Male

DRUGS (1)
  1. REPATHA [Suspect]
     Active Substance: EVOLOCUMAB
     Indication: Blood cholesterol abnormal
     Dosage: 140 MILLIGRAM, Q2WK
     Route: 065
     Dates: start: 20220808

REACTIONS (4)
  - Wrong technique in product usage process [Unknown]
  - Drug dose omission by device [Unknown]
  - Injection site haemorrhage [Unknown]
  - Injection site pain [Unknown]

NARRATIVE: CASE EVENT DATE: 20230112
